FAERS Safety Report 6059089-9 (Version None)
Quarter: 2009Q1

REPORT INFORMATION
  Report Type: 
  Country: None (occurrence: None)
  Receive Date: 20090130
  Receipt Date: 20090121
  Transmission Date: 20090719
  Serious: No
  Sender: FDA-Public Use
  Company Number: US-JNJFOC-20090106222

PATIENT
  Sex: Male
  Weight: 108.86 kg

DRUGS (3)
  1. DURAGESIC-100 [Suspect]
     Indication: DIABETIC NEUROPATHY
     Route: 062
  2. LANTUS [Concomitant]
     Indication: TYPE 2 DIABETES MELLITUS
     Dosage: 20 UNITS SUBCUTANEOUS
     Route: 058
  3. NOVOLOG [Concomitant]
     Indication: TYPE 2 DIABETES MELLITUS
     Route: 058

REACTIONS (2)
  - DRUG ADMINISTERED AT INAPPROPRIATE SITE [None]
  - DRUG INEFFECTIVE [None]
